FAERS Safety Report 18523072 (Version 1)
Quarter: 2020Q4

REPORT INFORMATION
  Report Type: Spontaneous
  Country: US (occurrence: US)
  Receive Date: 20201119
  Receipt Date: 20201119
  Transmission Date: 20210114
  Serious: Yes (Other)
  Sender: FDA-Public Use
  Company Number: US-NOVOPROD-693577

PATIENT
  Sex: Female

DRUGS (1)
  1. NOVOLOG MIX 70/30 [Suspect]
     Active Substance: INSULIN ASPART
     Indication: TYPE 2 DIABETES MELLITUS
     Dosage: 100 IU, BID
     Route: 058
     Dates: start: 2009

REACTIONS (7)
  - Blood glucose decreased [Not Recovered/Not Resolved]
  - Product communication issue [Unknown]
  - Weight decreased [Unknown]
  - Insulin resistance [Unknown]
  - Visual impairment [Not Recovered/Not Resolved]
  - Hypoglycaemic coma [Recovered/Resolved]
  - Blood glucose increased [Not Recovered/Not Resolved]

NARRATIVE: CASE EVENT DATE: 2018
